FAERS Safety Report 14569259 (Version 1)
Quarter: 2018Q1

REPORT INFORMATION
  Report Type: Spontaneous
  Country: US (occurrence: US)
  Receive Date: 20180220
  Receipt Date: 20180220
  Transmission Date: 20180509
  Serious: No
  Sender: FDA-Public Use
  Company Number: None

PATIENT
  Age: 25 Year
  Sex: Female
  Weight: 72 kg

DRUGS (1)
  1. BUPRENORPHINE/NALOXONE [Suspect]
     Active Substance: BUPRENORPHINE\NALOXONE
     Indication: DRUG DEPENDENCE
     Route: 060
     Dates: start: 20171212, end: 20180220

REACTIONS (5)
  - Headache [None]
  - Back pain [None]
  - Dizziness [None]
  - Confusional state [None]
  - Hyperhidrosis [None]

NARRATIVE: CASE EVENT DATE: 20180102
